FAERS Safety Report 5372639-0 (Version None)
Quarter: 2007Q2

REPORT INFORMATION
  Report Type: 
  Country: None (occurrence: None)
  Receive Date: 20070626
  Receipt Date: 20070614
  Transmission Date: 20071010
  Serious: Yes (Hospitalization)
  Sender: FDA-Public Use
  Company Number: GXKR2007GB05152

PATIENT
  Age: 54 Year
  Sex: Female

DRUGS (1)
  1. METFORMIN HCL [Suspect]
     Indication: DIABETES MELLITUS NON-INSULIN-DEPENDENT
     Dosage: 850 MG, TID, UNKNOWN

REACTIONS (12)
  - AGITATION [None]
  - CELLULITIS [None]
  - DEHYDRATION [None]
  - DEPRESSED LEVEL OF CONSCIOUSNESS [None]
  - DIARRHOEA [None]
  - HAEMODIALYSIS [None]
  - HYPOTENSION [None]
  - HYPOVOLAEMIA [None]
  - LACTIC ACIDOSIS [None]
  - PERIPHERAL CIRCULATORY FAILURE [None]
  - RENAL FAILURE ACUTE [None]
  - TACHYCARDIA [None]
